FAERS Safety Report 17500237 (Version 2)
Quarter: 2020Q1

REPORT INFORMATION
  Report Type: Spontaneous
  Country: DE (occurrence: DE)
  Receive Date: 20200305
  Receipt Date: 20200331
  Transmission Date: 20200409
  Serious: Yes (Death, Hospitalization, Other)
  Sender: FDA-Public Use
  Company Number: DE-CELLTRION INC.-2020DE020149

PATIENT

DRUGS (7)
  1. RITUXIMAB (UNKNOWN) [Suspect]
     Active Substance: RITUXIMAB
     Indication: POST TRANSPLANT LYMPHOPROLIFERATIVE DISORDER
     Dosage: 375 MG/M2 TOTAL BODY SURFACE AREA (TBSA) ON DAY 1
     Route: 065
  2. RITUXIMAB (UNKNOWN) [Suspect]
     Active Substance: RITUXIMAB
     Dosage: 375 MG/M2 TOTAL BODY SURFACE AREA (TBSA) ON DAY 4
     Route: 065
  3. METHYLPREDNISOLONE. [Suspect]
     Active Substance: METHYLPREDNISOLONE
     Indication: POST TRANSPLANT LYMPHOPROLIFERATIVE DISORDER
     Dosage: 2 MG/KG BIWEEKLY
     Route: 065
  4. VINCRISTINE [Suspect]
     Active Substance: VINCRISTINE
     Indication: POST TRANSPLANT LYMPHOPROLIFERATIVE DISORDER
     Dosage: 1.4 MG/M2 TOTAL BODY SURFACE AREA (TBSA) ON DAY 4
     Route: 065
  5. DARATUMUMAB [Suspect]
     Active Substance: DARATUMUMAB
     Indication: POST TRANSPLANT LYMPHOPROLIFERATIVE DISORDER
     Dosage: 8 MG/KG BIWEEKLY ON DAY 6
  6. DARATUMUMAB [Suspect]
     Active Substance: DARATUMUMAB
     Dosage: 8 MG/KG BIWEEKLY ON DAY 7
  7. CYCLOPHOSPHAMIDE. [Concomitant]
     Active Substance: CYCLOPHOSPHAMIDE
     Indication: POST TRANSPLANT LYMPHOPROLIFERATIVE DISORDER
     Dosage: TOTAL BODY SURFACE AREA (TBSA)
     Route: 065

REACTIONS (4)
  - Disease progression [Fatal]
  - Drug ineffective [Unknown]
  - Product use in unapproved indication [Unknown]
  - Post transplant lymphoproliferative disorder [Fatal]
